FAERS Safety Report 14613942 (Version 1)
Quarter: 2018Q1

REPORT INFORMATION
  Report Type: Spontaneous
  Country: US (occurrence: US)
  Receive Date: 20180308
  Receipt Date: 20180308
  Transmission Date: 20180509
  Serious: Yes (Death, Hospitalization)
  Sender: FDA-Public Use
  Company Number: None

PATIENT

DRUGS (28)
  1. LORAZEPAM. [Concomitant]
     Active Substance: LORAZEPAM
  2. ZOLPIDEM [Concomitant]
     Active Substance: ZOLPIDEM\ZOLPIDEM TARTRATE
  3. OXYCODONE [Concomitant]
     Active Substance: OXYCODONE
  4. CARAFATE [Concomitant]
     Active Substance: SUCRALFATE
  5. SPRYCEL [Concomitant]
     Active Substance: DASATINIB
  6. MORPHINE SUL [Concomitant]
     Active Substance: MORPHINE SULFATE
  7. TACROLIMUS. [Concomitant]
     Active Substance: TACROLIMUS
  8. BOSULIF [Suspect]
     Active Substance: BOSUTINIB MONOHYDRATE
     Indication: CHRONIC MYELOID LEUKAEMIA
     Route: 048
  9. FLUOCINONIDE. [Concomitant]
     Active Substance: FLUOCINONIDE
  10. METOPROL TAR [Concomitant]
  11. DESONIDE. [Concomitant]
     Active Substance: DESONIDE
  12. PREDNISONE. [Concomitant]
     Active Substance: PREDNISONE
  13. SIMVASTATIN. [Concomitant]
     Active Substance: SIMVASTATIN
  14. CLINDAMYCIN. [Concomitant]
     Active Substance: CLINDAMYCIN
  15. VALACYCLOVIR [Concomitant]
     Active Substance: VALACYCLOVIR HYDROCHLORIDE
  16. CLARITIN [Concomitant]
     Active Substance: LORATADINE
  17. LEVOFLOXACIN. [Concomitant]
     Active Substance: LEVOFLOXACIN
  18. ONDANSETRON [Concomitant]
     Active Substance: ONDANSETRON
  19. ZOFRAN [Concomitant]
     Active Substance: ONDANSETRON HYDROCHLORIDE
  20. AZITHROMYCIN ANHYDROUS. [Concomitant]
     Active Substance: AZITHROMYCIN ANHYDROUS
  21. CRESEMBIA [Concomitant]
  22. URSODIOL. [Concomitant]
     Active Substance: URSODIOL
  23. MG-PLUS [Concomitant]
  24. ASPIRIN. [Concomitant]
     Active Substance: ASPIRIN
  25. RESTASIS [Concomitant]
     Active Substance: CYCLOSPORINE
  26. ICLUSIG [Concomitant]
     Active Substance: PONATINIB
  27. PANTOPRAZOLE [Concomitant]
     Active Substance: PANTOPRAZOLE
  28. KLOR-CON [Concomitant]
     Active Substance: POTASSIUM CHLORIDE

REACTIONS (1)
  - Death [None]
